FAERS Safety Report 8741894 (Version 2)
Quarter: 2013Q1

REPORT INFORMATION
  Report Type: Spontaneous
  Country: US (occurrence: US)
  Receive Date: 20120824
  Receipt Date: 20130123
  Transmission Date: 20140127
  Serious: No
  Sender: FDA-Public Use
  Company Number: US-PFIZER INC-2012203817

PATIENT
  Age: 53 Year
  Sex: Female

DRUGS (4)
  1. DEPO-ESTRADIOL [Suspect]
     Indication: POSTMENOPAUSE
     Dosage: UNK, ONCE A MONTH
     Route: 030
  2. SYNTHROID [Concomitant]
     Dosage: UNK
  3. CYMBALTA [Concomitant]
     Dosage: UNK
  4. LIDODERM [Concomitant]
     Dosage: UNK

REACTIONS (1)
  - Drug ineffective [Unknown]
